FAERS Safety Report 4731599-3 (Version None)
Quarter: 2005Q3

REPORT INFORMATION
  Report Type: 
  Country: None (occurrence: None)
  Receive Date: 20050802
  Receipt Date: 20050721
  Transmission Date: 20060218
  Serious: Yes (Other)
  Sender: FDA-Public Use
  Company Number: JP-ROCHE-411628

PATIENT
  Age: 20 Year
  Sex: Female

DRUGS (3)
  1. ROCEPHIN [Suspect]
     Indication: PAROTITIS
     Route: 041
     Dates: start: 20050720
  2. FLOMOX [Concomitant]
     Route: 048
  3. RANTUDIL [Concomitant]
     Route: 048

REACTIONS (1)
  - ANAPHYLACTIC REACTION [None]
